FAERS Safety Report 13139559 (Version 1)
Quarter: 2017Q1

REPORT INFORMATION
  Report Type: Spontaneous
  Country: US (occurrence: US)
  Receive Date: 20170123
  Receipt Date: 20170123
  Transmission Date: 20170428
  Serious: No
  Sender: FDA-Public Use
  Company Number: US-REGENERON PHARMACEUTICALS, INC.-2016-17192

PATIENT

DRUGS (3)
  1. EYLEA [Suspect]
     Active Substance: AFLIBERCEPT
     Indication: NEOVASCULAR AGE-RELATED MACULAR DEGENERATION
     Dosage: 1 MG MILLIGRAM(S), MONTHLY BOTH EYES (OU)
     Route: 031
     Dates: start: 20160506
  2. BETADINE [Suspect]
     Active Substance: POVIDONE-IODINE
     Indication: INFECTION PROPHYLAXIS
     Dosage: UNK
     Route: 061
     Dates: start: 20160506
  3. AVASTIN [Suspect]
     Active Substance: BEVACIZUMAB
     Indication: NEOVASCULAR AGE-RELATED MACULAR DEGENERATION
     Dosage: UNK, MONTHLY
     Route: 031
     Dates: start: 20160212, end: 20160427

REACTIONS (3)
  - Injection site pain [Recovered/Resolved]
  - Ocular discomfort [Recovering/Resolving]
  - Eye irritation [Recovered/Resolved]

NARRATIVE: CASE EVENT DATE: 20160506
